FAERS Safety Report 7005936-3 (Version None)
Quarter: 2010Q3

REPORT INFORMATION
  Report Type: 
  Country: None (occurrence: None)
  Receive Date: 20100921
  Receipt Date: 20100908
  Transmission Date: 20110219
  Serious: Yes (Hospitalization)
  Sender: FDA-Public Use
  Company Number: US-ELI_LILLY_AND_COMPANY-US201009004479

PATIENT
  Age: 49 Year
  Sex: Female

DRUGS (3)
  1. DULOXETINE HYDROCHLORIDE [Suspect]
     Dosage: 30 MG, DAILY (1/D)
  2. CLONAZEPAM [Concomitant]
  3. ACETAMINOPHEN [Concomitant]

REACTIONS (4)
  - HEPATIC FIBROSIS [None]
  - HEPATIC NECROSIS [None]
  - LIVER INJURY [None]
  - THROMBOCYTOPENIA [None]
